FAERS Safety Report 6519370-3 (Version None)
Quarter: 2009Q4

REPORT INFORMATION
  Report Type: 
  Country: None (occurrence: None)
  Receive Date: 20091228
  Receipt Date: 20091218
  Transmission Date: 20100525
  Serious: Yes (Hospitalization)
  Sender: FDA-Public Use
  Company Number: GXKR2009JP13670

PATIENT
  Age: 50 Year
  Sex: Male

DRUGS (3)
  1. PREDNISOLONE [Suspect]
     Indication: COLITIS ULCERATIVE
     Route: 048
  2. PREDNISOLONE [Suspect]
     Dosage: 60 MG/DAY
     Route: 042
  3. PREDNISOLONE [Suspect]
     Dosage: 10 MG/DAY
     Route: 048

REACTIONS (5)
  - COLITIS ULCERATIVE [None]
  - INTESTINAL CYST [None]
  - LEUKAPHERESIS [None]
  - PNEUMATOSIS INTESTINALIS [None]
  - RECTAL HAEMORRHAGE [None]
